FAERS Safety Report 23194707 (Version 1)
Quarter: 2023Q4

REPORT INFORMATION
  Report Type: Spontaneous
  Country: US (occurrence: US)
  Receive Date: 20231117
  Receipt Date: 20231117
  Transmission Date: 20240110
  Serious: No
  Sender: FDA-Public Use
  Company Number: US-drreddys-SPO/USA/23/0182647

PATIENT
  Age: 15 Year

DRUGS (2)
  1. ACCUTANE [Suspect]
     Active Substance: ISOTRETINOIN
     Indication: Product used for unknown indication
     Dosage: RMA ISSUE DATE: 26 APRIL 2023 09:52:22 AM, 30 MAY 2023 09:20:37 AM, 27 JUNE 2023 10:16:24 AM
  2. ACCUTANE [Suspect]
     Active Substance: ISOTRETINOIN
     Dosage: RMA ISSUE DATE: 14 SEPTEMBER 2021 02:47:25 PM, 22 OCTOBER 2021 01:36:36 PM, 16 NOVEMBER 2021 10:22:2

REACTIONS (1)
  - Therapy cessation [Unknown]
